FAERS Safety Report 13014434 (Version 2)
Quarter: 2016Q4

REPORT INFORMATION
  Report Type: Spontaneous
  Country: US (occurrence: US)
  Receive Date: 20161209
  Receipt Date: 20161223
  Transmission Date: 20170207
  Serious: Yes (Other)
  Sender: FDA-Public Use
  Company Number: US-ALLERGAN-1677299US

PATIENT
  Age: 81 Year
  Sex: Female

DRUGS (2)
  1. IMODIUM [Concomitant]
     Active Substance: LOPERAMIDE HYDROCHLORIDE
     Indication: PRODUCT USED FOR UNKNOWN INDICATION
  2. LINZESS [Suspect]
     Active Substance: LINACLOTIDE
     Indication: IRRITABLE BOWEL SYNDROME
     Dosage: 290 ?G, SINGLE
     Route: 048
     Dates: start: 201611, end: 201611

REACTIONS (5)
  - Off label use [Unknown]
  - Gastrointestinal carcinoma [Not Recovered/Not Resolved]
  - Bowel movement irregularity [Unknown]
  - Nodule [Unknown]
  - Weight decreased [Unknown]

NARRATIVE: CASE EVENT DATE: 201611
